FAERS Safety Report 14478964 (Version 3)
Quarter: 2018Q4

REPORT INFORMATION
  Report Type: Spontaneous
  Country: US (occurrence: US)
  Receive Date: 20180202
  Receipt Date: 20181129
  Transmission Date: 20190204
  Serious: Yes (Other)
  Sender: FDA-Public Use
  Company Number: US-PFIZER INC-2018043278

PATIENT
  Age: 81 Year
  Sex: Male
  Weight: 77 kg

DRUGS (3)
  1. LYRICA [Suspect]
     Active Substance: PREGABALIN
     Indication: DIABETIC NEUROPATHY
     Dosage: 100 MG, 2X/DAY
     Route: 048
  2. LYRICA [Suspect]
     Active Substance: PREGABALIN
     Indication: BACK DISORDER
  3. LYRICA [Suspect]
     Active Substance: PREGABALIN
     Indication: PAIN

REACTIONS (10)
  - Malaise [Unknown]
  - Drug ineffective [Unknown]
  - Urinary tract infection [Unknown]
  - Fall [Unknown]
  - Product dispensing error [Unknown]
  - Poor quality product administered [Unknown]
  - Product storage error [Unknown]
  - Balance disorder [Unknown]
  - Body height decreased [Unknown]
  - Parkinson^s disease [Unknown]
